FAERS Safety Report 9621254 (Version 1)
Quarter: 2013Q4

REPORT INFORMATION
  Report Type: Report from Study
  Country: CA (occurrence: CA)
  Receive Date: 20131015
  Receipt Date: 20131015
  Transmission Date: 20140711
  Serious: Yes (Hospitalization)
  Sender: FDA-Public Use
  Company Number: CA-JNJFOC-20131006108

PATIENT
  Age: 42 Year
  Sex: Female
  Weight: 85 kg

DRUGS (1)
  1. REMICADE [Suspect]
     Indication: CROHN^S DISEASE
     Route: 042
     Dates: start: 20110119

REACTIONS (4)
  - Cholelithiasis [Recovering/Resolving]
  - Pancreatitis [Recovering/Resolving]
  - Cholecystitis [Recovering/Resolving]
  - Staphylococcal infection [Recovering/Resolving]
